FAERS Safety Report 7565873-2 (Version None)
Quarter: 2011Q2

REPORT INFORMATION
  Report Type: 
  Country: None (occurrence: None)
  Receive Date: 20110623
  Receipt Date: 20110618
  Transmission Date: 20111010
  Serious: No
  Sender: FDA-Public Use
  Company Number: US-PFIZER INC-2009187332

PATIENT
  Sex: Female

DRUGS (1)
  1. LYRICA [Suspect]
     Dosage: UNK

REACTIONS (4)
  - SKIN DISORDER [None]
  - FEELING ABNORMAL [None]
  - OEDEMA PERIPHERAL [None]
  - WEIGHT INCREASED [None]
